FAERS Safety Report 12647311 (Version 1)
Quarter: 2016Q3

REPORT INFORMATION
  Report Type: Report from Study
  Country: CA (occurrence: CA)
  Receive Date: 20160812
  Receipt Date: 20160812
  Transmission Date: 20161109
  Serious: Yes (Other)
  Sender: FDA-Public Use
  Company Number: PHHY2016CA109444

PATIENT
  Age: 38 Year
  Sex: Male

DRUGS (2)
  1. PREDNISONE. [Concomitant]
     Active Substance: PREDNISONE
     Indication: PRODUCT USED FOR UNKNOWN INDICATION
     Route: 065
  2. GILENYA [Suspect]
     Active Substance: FINGOLIMOD HYDROCHLORIDE
     Indication: PRODUCT USED FOR UNKNOWN INDICATION
     Route: 048
     Dates: start: 20150202

REACTIONS (6)
  - Dyspnoea [Unknown]
  - Fall [Unknown]
  - Chest injury [Unknown]
  - Abdominal injury [Unknown]
  - Back injury [Unknown]
  - Contusion [Unknown]

NARRATIVE: CASE EVENT DATE: 20160730
